FAERS Safety Report 25482874 (Version 1)
Quarter: 2025Q2

REPORT INFORMATION
  Report Type: Spontaneous
  Country: ES (occurrence: ES)
  Receive Date: 20250626
  Receipt Date: 20250626
  Transmission Date: 20250717
  Serious: Yes (Death, Hospitalization, Other)
  Sender: AUROBINDO
  Company Number: ES-MABO-2025009499

PATIENT
  Age: 81 Year
  Sex: Female
  Weight: 58 kg

DRUGS (11)
  1. MEROPENEM [Suspect]
     Active Substance: MEROPENEM
     Indication: Product used for unknown indication
     Route: 065
     Dates: end: 20240926
  2. OMEPRAZOLE [Suspect]
     Active Substance: OMEPRAZOLE
     Indication: Product used for unknown indication
     Route: 065
  3. PIPERACILLIN AND TAZOBACTAM [Suspect]
     Active Substance: PIPERACILLIN SODIUM\TAZOBACTAM SODIUM
     Indication: Product used for unknown indication
     Route: 065
     Dates: end: 20240923
  4. RISPERIDONE [Suspect]
     Active Substance: RISPERIDONE
     Indication: Product used for unknown indication
     Route: 065
     Dates: end: 20240909
  5. ANHYDROUS CITRIC ACID\MAGNESIUM OXIDE\SODIUM PICOSULFATE [Suspect]
     Active Substance: ANHYDROUS CITRIC ACID\MAGNESIUM OXIDE\SODIUM PICOSULFATE
     Indication: Product used for unknown indication
     Route: 042
     Dates: end: 20240825
  6. DEXAMETHASONE [Suspect]
     Active Substance: DEXAMETHASONE
     Indication: Colorectal cancer
     Route: 042
     Dates: start: 20240110
  7. DEXTROSE MONOHYDRATE\SODIUM CHLORIDE [Suspect]
     Active Substance: DEXTROSE MONOHYDRATE\SODIUM CHLORIDE
     Indication: Product used for unknown indication
     Route: 065
     Dates: start: 20240821, end: 20240825
  8. HALOPERIDOL [Suspect]
     Active Substance: HALOPERIDOL
     Indication: Product used for unknown indication
     Route: 065
     Dates: end: 20240925
  9. REMDESIVIR [Suspect]
     Active Substance: REMDESIVIR
     Indication: Product used for unknown indication
     Route: 065
  10. SULFAMETHOXAZOLE\TRIMETHOPRIM [Suspect]
     Active Substance: SULFAMETHOXAZOLE\TRIMETHOPRIM
     Indication: Product used for unknown indication
     Route: 065
     Dates: end: 20240926
  11. ALBUTEROL [Suspect]
     Active Substance: ALBUTEROL
     Indication: Product used for unknown indication
     Route: 065
     Dates: end: 20240925

REACTIONS (2)
  - Large intestinal ulcer [Fatal]
  - COVID-19 pneumonia [Fatal]

NARRATIVE: CASE EVENT DATE: 20240821
